FAERS Safety Report 25539636 (Version 1)
Quarter: 2025Q3

REPORT INFORMATION
  Report Type: Spontaneous
  Country: US (occurrence: None)
  Receive Date: 20250710
  Receipt Date: 20250710
  Transmission Date: 20251020
  Serious: Yes (Disabling)
  Sender: FDA-CTU
  Company Number: None

PATIENT
  Age: 72 Year
  Sex: Female
  Weight: 66.6 kg

DRUGS (6)
  1. CIPROFLOXACIN [Suspect]
     Active Substance: CIPROFLOXACIN
     Indication: Urinary tract infection
     Dosage: OTHER QUANTITY : 10 TABLET(S);?FREQUENCY : EVERY 12 HOURS;?
     Route: 048
     Dates: start: 20240601, end: 20240605
  2. SYNTHROID [Concomitant]
     Active Substance: LEVOTHYROXINE SODIUM
  3. LATANORPOST EYE DROPS [Concomitant]
  4. MULTI-VITAMIN [Concomitant]
     Active Substance: .ALPHA.-TOCOPHEROL ACETATE, DL-\ASCORBIC ACID\CYANOCOBALAMIN\FLUORIDE ION\FOLIC ACID\NIACIN\PYRIDOXI
  5. VITAMIN D [Concomitant]
     Active Substance: VITAMIN D NOS
  6. OMEGA-3 OIL [Concomitant]

REACTIONS (23)
  - Pain in extremity [None]
  - Arthralgia [None]
  - Muscular weakness [None]
  - Pain in jaw [None]
  - Arthralgia [None]
  - Muscular weakness [None]
  - Rotator cuff syndrome [None]
  - Tendon rupture [None]
  - Bursa injury [None]
  - Muscle rupture [None]
  - Ligamentitis [None]
  - Joint injury [None]
  - Arthralgia [None]
  - Pain in extremity [None]
  - Pain in extremity [None]
  - Paraesthesia [None]
  - Hypoaesthesia [None]
  - Gait disturbance [None]
  - Gait disturbance [None]
  - Balance disorder [None]
  - Arthralgia [None]
  - Pain in extremity [None]
  - Tendon rupture [None]

NARRATIVE: CASE EVENT DATE: 20240715
